FAERS Safety Report 6100080-1 (Version None)
Quarter: 2009Q1

REPORT INFORMATION
  Report Type: 
  Country: None (occurrence: None)
  Receive Date: 20090303
  Receipt Date: 20090225
  Transmission Date: 20090719
  Serious: Yes (Other)
  Sender: FDA-Public Use
  Company Number: B0562224A

PATIENT
  Age: 38 Year
  Sex: Male

DRUGS (5)
  1. AUGMENTIN '125' [Suspect]
     Indication: INFECTION
     Route: 042
  2. ETORICOXIB [Concomitant]
  3. RANITIDINE [Concomitant]
  4. PARACETAMOL [Concomitant]
  5. ENOXAPARIN SODIUM [Concomitant]

REACTIONS (3)
  - HEPATIC ENZYME INCREASED [None]
  - HYPERBILIRUBINAEMIA [None]
  - JAUNDICE [None]
